FAERS Safety Report 4604114-2 (Version None)
Quarter: 2005Q1

REPORT INFORMATION
  Report Type: 
  Country: None (occurrence: None)
  Receive Date: 20050308
  Receipt Date: 20050308
  Transmission Date: 20050727
  Serious: Yes (Hospitalization)
  Sender: FDA-Public Use
  Company Number: None

PATIENT
  Age: 71 Year
  Sex: Male
  Weight: 110.2241 kg

DRUGS (9)
  1. LISINOPRIL [Suspect]
     Dosage: 40 MG DAILY ORAL
     Route: 048
  2. FELODIPINE [Concomitant]
  3. ASPIRIN [Concomitant]
  4. METOPROLOL TARTRATE [Concomitant]
  5. SIMVASTATIN [Concomitant]
  6. FUROSEMIDE [Concomitant]
  7. FERROUS SULFATE TAB [Concomitant]
  8. RABEPRAZOLE SODIUM [Concomitant]
  9. APAP TAB [Concomitant]

REACTIONS (1)
  - ANGIONEUROTIC OEDEMA [None]
